FAERS Safety Report 5122376-2 (Version None)
Quarter: 2006Q4

REPORT INFORMATION
  Report Type: 
  Country: None (occurrence: None)
  Receive Date: 20061004
  Receipt Date: 20060926
  Transmission Date: 20070319
  Serious: Yes (Other)
  Sender: FDA-Public Use
  Company Number: 2006US-02844

PATIENT
  Age: 14 Year
  Sex: Female

DRUGS (1)
  1. ISOTRETINOIN [Suspect]
     Dosage: 40 MG, QD
     Dates: start: 20060518, end: 20060701

REACTIONS (3)
  - CRYING [None]
  - DEPERSONALISATION [None]
  - HALLUCINATION [None]
